FAERS Safety Report 6640717-1 (Version None)
Quarter: 2010Q1

REPORT INFORMATION
  Report Type: 
  Country: None (occurrence: None)
  Receive Date: 20100318
  Receipt Date: 20100305
  Transmission Date: 20100710
  Serious: Yes (Hospitalization)
  Sender: FDA-Public Use
  Company Number: US-ELI_LILLY_AND_COMPANY-US200911007305

PATIENT
  Sex: Male
  Weight: 117.1 kg

DRUGS (11)
  1. BYETTA [Suspect]
     Dosage: 10 UG, 2/D
     Route: 058
     Dates: start: 20061116, end: 20071228
  2. METFORMIN HYDROCHLORIDE [Concomitant]
     Indication: DIABETES MELLITUS
     Dosage: 850 MG, 2/D
     Route: 048
     Dates: start: 19950101, end: 20071201
  3. GLIPIZIDE [Concomitant]
     Indication: DIABETES MELLITUS
     Dosage: 5 MG, 2/D
     Route: 048
     Dates: start: 19950101, end: 20071201
  4. LIPITOR [Concomitant]
     Indication: BLOOD CHOLESTEROL
     Dosage: UNK, UNK
     Dates: start: 19950101
  5. TYLENOL /SCH/ [Concomitant]
     Indication: INSOMNIA
     Dates: start: 19990101
  6. FISH OIL [Concomitant]
  7. NIACIN [Concomitant]
  8. ANTIHYPERTENSIVES [Concomitant]
     Indication: RENAL DISORDER
  9. CARDURA [Concomitant]
     Dosage: 2 MG, DAILY (1/D)
     Route: 048
  10. LASIX [Concomitant]
     Dosage: UNK, AS NEEDED
  11. XANAX [Concomitant]
     Dosage: 0.5 MG, EACH EVENING
     Route: 048

REACTIONS (5)
  - ABDOMINAL PAIN [None]
  - CONSTIPATION [None]
  - NEPHROLITHIASIS [None]
  - PANCREATITIS [None]
  - RENAL INJURY [None]
